FAERS Safety Report 19233464 (Version 1)
Quarter: 2021Q2

REPORT INFORMATION
  Report Type: Spontaneous
  Country: US (occurrence: US)
  Receive Date: 20210507
  Receipt Date: 20210507
  Transmission Date: 20210717
  Serious: Yes (Hospitalization, Other)
  Sender: FDA-Public Use
  Company Number: US-GLAXOSMITHKLINE-US2021095261

PATIENT
  Age: 62 Year
  Sex: Female

DRUGS (1)
  1. ADVAIR DISKUS [Suspect]
     Active Substance: FLUTICASONE PROPIONATE\SALMETEROL XINAFOATE
     Indication: CHRONIC OBSTRUCTIVE PULMONARY DISEASE
     Dosage: UNK

REACTIONS (6)
  - Transfusion [Unknown]
  - Thrombosis [Unknown]
  - Blood iron decreased [Unknown]
  - Blood test abnormal [Unknown]
  - Dyspnoea [Recovering/Resolving]
  - Traumatic lung injury [Unknown]

NARRATIVE: CASE EVENT DATE: 20210106
